FAERS Safety Report 5501545-3 (Version None)
Quarter: 2007Q4

REPORT INFORMATION
  Report Type: 
  Country: None (occurrence: None)
  Receive Date: 20071030
  Receipt Date: 20071018
  Transmission Date: 20080405
  Serious: Yes (Disabling)
  Sender: FDA-Public Use
  Company Number: GB-ASTRAZENECA-2007GB02145

PATIENT
  Age: 77 Year
  Sex: Male
  Weight: 90 kg

DRUGS (5)
  1. OMEPRAZOLE [Suspect]
     Indication: PROPHYLAXIS
     Route: 048
     Dates: start: 20061016, end: 20061102
  2. ALENDRONIC ACID [Concomitant]
     Route: 048
     Dates: start: 20061016, end: 20061031
  3. ASPIRIN [Concomitant]
     Indication: PROPHYLAXIS
     Route: 048
     Dates: start: 20061016, end: 20061031
  4. CALCICHEW D3 [Concomitant]
     Route: 048
     Dates: start: 20061016, end: 20061031
  5. PREDNISOLONE [Concomitant]
     Indication: PULMONARY FIBROSIS
     Route: 048
     Dates: start: 20061016, end: 20061031

REACTIONS (2)
  - BLOOD CREATINE PHOSPHOKINASE INCREASED [None]
  - MYOSITIS [None]
